FAERS Safety Report 7823747-3 (Version None)
Quarter: 2011Q4

REPORT INFORMATION
  Report Type: 
  Country: None (occurrence: None)
  Receive Date: 20111019
  Receipt Date: 20111014
  Transmission Date: 20120403
  Serious: No
  Sender: FDA-Public Use
  Company Number: US-PFIZER INC-2011249552

PATIENT
  Sex: Female
  Weight: 81 kg

DRUGS (1)
  1. CELEBREX [Suspect]

REACTIONS (1)
  - DRUG HYPERSENSITIVITY [None]
